FAERS Safety Report 12933193 (Version 3)
Quarter: 2016Q4

REPORT INFORMATION
  Report Type: Spontaneous
  Country: US (occurrence: US)
  Receive Date: 20161111
  Receipt Date: 20161201
  Transmission Date: 20170207
  Serious: Yes (Other)
  Sender: FDA-Public Use
  Company Number: US-BAYER-2016-215437

PATIENT
  Sex: Male

DRUGS (1)
  1. HELIXATE FS [Suspect]
     Active Substance: ANTIHEMOPHILIC FACTOR, HUMAN RECOMBINANT
     Indication: FACTOR VIII DEFICIENCY
     Dosage: 1500 U, QOD
     Route: 042
     Dates: start: 20140917

REACTIONS (2)
  - Spontaneous haemorrhage [None]
  - Treatment noncompliance [None]
